FAERS Safety Report 6274866-7 (Version None)
Quarter: 2009Q3

REPORT INFORMATION
  Report Type: 
  Country: None (occurrence: None)
  Receive Date: 20090721
  Receipt Date: 20090717
  Transmission Date: 20100115
  Serious: Yes (Hospitalization)
  Sender: FDA-Public Use
  Company Number: DE-BRISTOL-MYERS SQUIBB COMPANY-14666663

PATIENT
  Age: 66 Year
  Sex: Male

DRUGS (2)
  1. PACLITAXEL [Suspect]
     Indication: NON-SMALL CELL LUNG CANCER
     Dosage: 391MG, ONCE DAILY EVERY 3 WEEKS; INTERRUPTED ON 13MAY09
     Route: 042
     Dates: start: 20090513
  2. CARBOPLATIN [Suspect]
     Indication: NON-SMALL CELL LUNG CANCER
     Dosage: 841MG, ONCE DAILY EVERY 3 WEEKS INTERRUPTED ON 13MAY09
     Route: 042
     Dates: start: 20090513

REACTIONS (1)
  - RENAL FAILURE [None]
